FAERS Safety Report 4522161-6 (Version None)
Quarter: 2004Q4

REPORT INFORMATION
  Report Type: 
  Country: None (occurrence: None)
  Receive Date: 20041209
  Receipt Date: 20041201
  Transmission Date: 20050328
  Serious: Yes (Hospitalization)
  Sender: FDA-Public Use
  Company Number: JP-ROCHE-387614

PATIENT
  Age: 62 Year
  Sex: Male

DRUGS (4)
  1. CERCINE [Suspect]
     Indication: CONVULSION
     Dosage: ROUTE: IJ
     Route: 042
     Dates: start: 20041114, end: 20041114
  2. DORMICUM (INJ) [Suspect]
     Indication: CONVULSION
     Dosage: ROUTE REPORTED AS INJECTION. DOSAGE: 1ML/H BY CONTINUOUS INFUSION.
     Route: 041
     Dates: start: 20041114, end: 20041115
  3. ALEVIATIN [Suspect]
     Indication: CONVULSION
     Route: 041
     Dates: start: 20041115, end: 20041116
  4. ALEVIATIN [Suspect]
     Route: 048
     Dates: start: 20041116, end: 20041118

REACTIONS (3)
  - ALANINE AMINOTRANSFERASE INCREASED [None]
  - BLOOD CREATINE PHOSPHOKINASE INCREASED [None]
  - GAMMA-GLUTAMYLTRANSFERASE INCREASED [None]
